FAERS Safety Report 22178891 (Version 4)
Quarter: 2025Q3

REPORT INFORMATION
  Report Type: Spontaneous
  Country: US (occurrence: US)
  Receive Date: 20230406
  Receipt Date: 20250718
  Transmission Date: 20251021
  Serious: No
  Sender: AMGEN
  Company Number: US-AMGEN-USASP2023057532

PATIENT
  Sex: Female

DRUGS (4)
  1. OTEZLA [Suspect]
     Active Substance: APREMILAST
     Indication: Psoriasis
     Dosage: 30 MILLIGRAM, BID
     Route: 048
     Dates: start: 20180124
  2. CITALOPRAM [Concomitant]
     Active Substance: CITALOPRAM
     Route: 065
  3. HYDROCHLOROTHIAZIDE [Concomitant]
     Active Substance: HYDROCHLOROTHIAZIDE
     Route: 065
  4. TAMOXIFEN [Concomitant]
     Active Substance: TAMOXIFEN
     Route: 065

REACTIONS (6)
  - Therapy non-responder [Unknown]
  - Nausea [Unknown]
  - Vomiting [Unknown]
  - Pain [Recovered/Resolved]
  - Product dose omission issue [Unknown]
  - Diarrhoea [Unknown]
